FAERS Safety Report 8969617 (Version 1)
Quarter: 2012Q4

REPORT INFORMATION
  Report Type: 
  Country: US (occurrence: US)
  Receive Date: 20121218
  Receipt Date: 20121218
  Transmission Date: 20130627
  Serious: No
  Sender: FDA-Public Use
  Company Number: US-BRISTOL-MYERS SQUIBB COMPANY-16273187

PATIENT
  Age: 38 Year
  Sex: Male
  Weight: 134 kg

DRUGS (2)
  1. ABILIFY [Suspect]
     Indication: ATTENTION DEFICIT/HYPERACTIVITY DISORDER
     Dosage: started 2 weeks ago. interrupted
     Dates: start: 2011
  2. ABILIFY [Suspect]
     Indication: DEPRESSION
     Dosage: started 2 weeks ago. interrupted
     Dates: start: 2011

REACTIONS (2)
  - Dry eye [Recovering/Resolving]
  - Eye irritation [Recovering/Resolving]
